FAERS Safety Report 6030789-X (Version None)
Quarter: 2009Q1

REPORT INFORMATION
  Report Type: 
  Country: None (occurrence: None)
  Receive Date: 20090107
  Receipt Date: 20090105
  Transmission Date: 20090719
  Serious: Yes (Death)
  Sender: FDA-Public Use
  Company Number: PHEH2009US00446

PATIENT
  Sex: Male

DRUGS (1)
  1. ELIDEL [Suspect]
     Route: 061

REACTIONS (1)
  - DEATH [None]
